FAERS Safety Report 11492677 (Version 1)
Quarter: 2015Q3

REPORT INFORMATION
  Report Type: Spontaneous
  Country: US (occurrence: None)
  Receive Date: 20150910
  Receipt Date: 20150910
  Transmission Date: 20151125
  Serious: Yes (Hospitalization)
  Sender: FDA-Public Use
  Company Number: None

PATIENT
  Age: 78 Year
  Sex: Female
  Weight: 71 kg

DRUGS (10)
  1. RIBAVIRIN 1000MG [Suspect]
     Active Substance: RIBAVIRIN
     Indication: HEPATITIS C
     Route: 048
     Dates: start: 20150330, end: 20150621
  2. MELATONIN [Concomitant]
     Active Substance: MELATONIN
  3. NIFEDIPINE ER [Concomitant]
     Active Substance: NIFEDIPINE
  4. MYFORTIC [Concomitant]
     Active Substance: MYCOPHENOLATE SODIUM
  5. LACTULOSE. [Concomitant]
     Active Substance: LACTULOSE
  6. NEORAL [Concomitant]
     Active Substance: CYCLOSPORINE
  7. HARVONI [Suspect]
     Active Substance: LEDIPASVIR\SOFOSBUVIR
     Indication: HEPATITIS C
     Dosage: 90/400MG ONCE A DAY
     Route: 048
     Dates: start: 20150330, end: 20150621
  8. PROCRIT [Concomitant]
     Active Substance: ERYTHROPOIETIN
  9. METOPROLOL TARTRATE. [Concomitant]
     Active Substance: METOPROLOL TARTRATE
  10. BENADRYL [Concomitant]
     Active Substance: DIPHENHYDRAMINE HYDROCHLORIDE

REACTIONS (3)
  - Haemolytic anaemia [None]
  - Dehydration [None]
  - Nausea [None]

NARRATIVE: CASE EVENT DATE: 20150416
